FAERS Safety Report 17077028 (Version 3)
Quarter: 2020Q1

REPORT INFORMATION
  Report Type: Spontaneous
  Country: JP (occurrence: JP)
  Receive Date: 20191126
  Receipt Date: 20200131
  Transmission Date: 20200409
  Serious: Yes (Hospitalization)
  Sender: FDA-Public Use
  Company Number: JP-ELI_LILLY_AND_COMPANY-JP201911010735

PATIENT
  Age: 70 Year
  Sex: Male

DRUGS (8)
  1. ERBITUX [Suspect]
     Active Substance: CETUXIMAB
     Dosage: 650 MG (5 MG/ML)
     Route: 041
     Dates: start: 20191119
  2. LOXONIN [Suspect]
     Active Substance: LOXOPROFEN SODIUM
     Dosage: 60 MG, EACH 0.3 DAYS
     Route: 065
     Dates: start: 20191014, end: 20191026
  3. 5 FU [Suspect]
     Active Substance: FLUOROURACIL
     Indication: OROPHARYNGEAL CANCER
     Dosage: 1140 MG, 3/W
     Route: 041
     Dates: start: 20191018
  4. CISPLATIN. [Suspect]
     Active Substance: CISPLATIN
     Indication: OROPHARYNGEAL CANCER
     Dosage: 95 MG, 3/W
     Route: 041
     Dates: start: 20191015
  5. LOXONIN [Suspect]
     Active Substance: LOXOPROFEN SODIUM
     Indication: CANCER PAIN
     Dosage: 60 MG, EACH 0.3 DAYS
     Route: 065
     Dates: start: 20190424, end: 20190517
  6. ERBITUX [Suspect]
     Active Substance: CETUXIMAB
     Dosage: 410 MG (5 MG/ML)
     Route: 041
     Dates: start: 20191126
  7. ERBITUX [Suspect]
     Active Substance: CETUXIMAB
     Dosage: 410 MG (5 MG/ML)
     Route: 041
     Dates: start: 20191022
  8. ERBITUX [Suspect]
     Active Substance: CETUXIMAB
     Indication: OROPHARYNGEAL CANCER
     Dosage: 650 MG (5 MG/ML)
     Route: 041
     Dates: start: 20191015

REACTIONS (1)
  - Duodenal perforation [Recovered/Resolved]

NARRATIVE: CASE EVENT DATE: 20191026
